FAERS Safety Report 18972933 (Version 1)
Quarter: 2021Q1

REPORT INFORMATION
  Report Type: Report from Study
  Country: US (occurrence: US)
  Receive Date: 20210305
  Receipt Date: 20210305
  Transmission Date: 20210420
  Serious: Yes (Other)
  Sender: FDA-Public Use
  Company Number: US-BAYER-2021-086383

PATIENT

DRUGS (3)
  1. HEPARIN [Interacting]
     Active Substance: HEPARIN SODIUM
  2. CLOPIDOGREL [Interacting]
     Active Substance: CLOPIDOGREL BISULFATE
  3. ASPIRIN 325 MG [Suspect]
     Active Substance: ASPIRIN
     Indication: ANEURYSM REPAIR

REACTIONS (4)
  - Haematoma [None]
  - Off label use [None]
  - Product use in unapproved indication [None]
  - Labelled drug-drug interaction medication error [None]
